FAERS Safety Report 4640629-9 (Version None)
Quarter: 2005Q2

REPORT INFORMATION
  Report Type: 
  Country: None (occurrence: None)
  Receive Date: 20050419
  Receipt Date: 20050329
  Transmission Date: 20051028
  Serious: Yes (Hospitalization, Other)
  Sender: FDA-Public Use
  Company Number: JP_040503144

PATIENT
  Age: 79 Year
  Sex: Male
  Weight: 61 kg

DRUGS (7)
  1. GEMZAR [Suspect]
     Indication: LUNG NEOPLASM MALIGNANT
     Dosage: 1670 MG OTHER
     Route: 050
     Dates: start: 20040119, end: 20040209
  2. NAVELBINE [Concomitant]
  3. SELBEX (TEPRENONE) [Concomitant]
  4. MOBIC [Concomitant]
  5. FERROMIA (FERROUS CITRATE) [Concomitant]
  6. LOXOPROFEN SODIUM [Concomitant]
  7. FAMOTIDINE [Concomitant]

REACTIONS (9)
  - ECZEMA [None]
  - EOSINOPHIL COUNT INCREASED [None]
  - EPISTAXIS [None]
  - HYPERSENSITIVITY [None]
  - INTERSTITIAL LUNG DISEASE [None]
  - NEUTROPHIL COUNT DECREASED [None]
  - PLATELET COUNT DECREASED [None]
  - VASCULITIS [None]
  - WHITE BLOOD CELL COUNT DECREASED [None]
